FAERS Safety Report 6749248-1 (Version None)
Quarter: 2010Q2

REPORT INFORMATION
  Report Type: 
  Country: None (occurrence: None)
  Receive Date: 20100601
  Receipt Date: 20100506
  Transmission Date: 20101027
  Serious: Yes (Hospitalization)
  Sender: FDA-Public Use
  Company Number: FR-ASTRAZENECA-2009SE23915

PATIENT
  Age: 5608 Day
  Sex: Male

DRUGS (25)
  1. MOPRAL [Suspect]
     Route: 048
     Dates: start: 20090824
  2. METHOTREXATE [Interacting]
     Indication: DIFFUSE LARGE B-CELL LYMPHOMA
     Dosage: 3 G/ME2 5.34 G/COURSE, 3 WEEK CYCLES
     Route: 042
     Dates: start: 20090824
  3. SODIUM BICARBONATE [Concomitant]
  4. PRIMPERAN TAB [Concomitant]
  5. LASIX [Concomitant]
  6. LACTULOSE [Concomitant]
  7. BISEPTINE [Concomitant]
  8. AUREOMYCINE [Concomitant]
     Dosage: 3 WEEK CYCLES
  9. GLUCOSE [Concomitant]
  10. SODIUM CHLORIDE [Concomitant]
  11. CERNEVIT-12 [Concomitant]
  12. VITAMIN K1 [Concomitant]
  13. FORTUM [Concomitant]
  14. VANCOMYCIN [Concomitant]
  15. PERFALGAN [Concomitant]
     Dosage: AS REQUIRED
  16. FOLINIC ACID [Concomitant]
  17. UROMITEXAN [Concomitant]
  18. ZOPHREN [Concomitant]
  19. PLITICAN [Concomitant]
  20. SPASFON [Concomitant]
  21. DEXAMETHASONE [Concomitant]
     Dosage: 9 MG, 18 MG/COURSE, 3 WEEK CYCLES
     Route: 048
     Dates: start: 20090824
  22. MYCOSTATIN [Concomitant]
  23. DOXORUBICIN HCL [Concomitant]
     Dosage: 45 MG/ COURSE
     Route: 042
     Dates: start: 20090806
  24. ENDOXAN [Concomitant]
     Route: 042
     Dates: start: 20090824
  25. ADRIAMYCIN PFS [Concomitant]
     Dosage: 46 MG IN 3 WEEK CYCLES

REACTIONS (2)
  - DRUG EFFECT PROLONGED [None]
  - DRUG INTERACTION [None]
